FAERS Safety Report 6242241-7 (Version None)
Quarter: 2009Q2

REPORT INFORMATION
  Report Type: 
  Country: None (occurrence: None)
  Receive Date: 20090624
  Receipt Date: 20090616
  Transmission Date: 20091009
  Serious: Yes (Other)
  Sender: FDA-Public Use
  Company Number: US-ELI_LILLY_AND_COMPANY-US200906004098

PATIENT
  Age: 65 Year
  Sex: Male

DRUGS (3)
  1. BYETTA [Suspect]
     Dosage: 10 UG, UNK
     Route: 058
     Dates: end: 20090615
  2. BYETTA [Suspect]
     Dosage: 5 UG, UNK
     Route: 058
  3. METFORMIN HCL [Concomitant]
     Dosage: 2000 MG, UNK
     Dates: end: 20090615

REACTIONS (4)
  - HYPERTENSION [None]
  - KETOACIDOSIS [None]
  - PYREXIA [None]
  - VOMITING [None]
